FAERS Safety Report 8734208 (Version 3)
Quarter: 2012Q4

REPORT INFORMATION
  Report Type: Report from Study
  Country: US (occurrence: None)
  Receive Date: 20120802
  Receipt Date: 20120816
  Transmission Date: 20130627
  Serious: Yes (Life-Threatening, Hospitalization)
  Sender: FDA-Public Use
  Company Number: 137108

PATIENT
  Age: 66 Year
  Sex: Male

DRUGS (1)
  1. DAUNORUBICIN HYDROCHLORIDE [Suspect]
     Indication: ACUTE MYELOID LEUKAEMIA
     Dosage: 435 MG TOTAL
     Dates: start: 20120524

REACTIONS (10)
  - SEPSIS [None]
  - RENAL FAILURE ACUTE [None]
  - DECREASED APPETITE [None]
  - MELAENA [None]
  - WEIGHT DECREASED [None]
  - PAIN IN EXTREMITY [None]
  - STAPHYLOCOCCUS TEST POSITIVE [None]
  - ENTEROCOCCAL INFECTION [None]
  - RASH MORBILLIFORM [None]
  - HYPOTENSION [None]
